FAERS Safety Report 6836337-6 (Version None)
Quarter: 2010Q3

REPORT INFORMATION
  Report Type: 
  Country: None (occurrence: None)
  Receive Date: 20100713
  Receipt Date: 20100706
  Transmission Date: 20110219
  Serious: Yes (Hospitalization, Disabling, Other)
  Sender: FDA-Public Use
  Company Number: US-MERCK-0903USA02264

PATIENT
  Age: 62 Year
  Sex: Female
  Weight: 40 kg

DRUGS (7)
  1. FOSAMAX [Suspect]
     Indication: OSTEOPOROSIS
     Route: 048
     Dates: start: 19970101, end: 20041001
  2. FOSAMAX [Suspect]
     Route: 048
     Dates: start: 20001101, end: 20010301
  3. FOSAMAX [Suspect]
     Route: 048
     Dates: start: 20010301
  4. FOSAMAX [Suspect]
     Route: 048
     Dates: end: 20050101
  5. CALCIUM (UNSPECIFIED) [Concomitant]
     Route: 065
  6. VITAMINS (UNSPECIFIED) [Concomitant]
     Route: 065
  7. PREMPRO [Concomitant]
     Indication: HORMONE REPLACEMENT THERAPY
     Route: 065
     Dates: start: 19880101, end: 20040101

REACTIONS (35)
  - APPENDICITIS [None]
  - ARTHRALGIA [None]
  - CELLULITIS [None]
  - DENTAL CARIES [None]
  - FATIGUE [None]
  - HYPERSENSITIVITY [None]
  - IMPAIRED HEALING [None]
  - INFLAMMATION [None]
  - INSOMNIA [None]
  - JAW DISORDER [None]
  - KYPHOSCOLIOSIS [None]
  - KYPHOSIS [None]
  - LOCALISED INFECTION [None]
  - LUMBAR RADICULOPATHY [None]
  - MACROCYTOSIS [None]
  - MAMMOGRAM ABNORMAL [None]
  - MICTURITION URGENCY [None]
  - NAIL DISORDER [None]
  - ORAL TORUS [None]
  - OSTEOARTHRITIS [None]
  - OSTEOMYELITIS [None]
  - OSTEONECROSIS OF JAW [None]
  - PAIN [None]
  - POLLAKIURIA [None]
  - RESTLESS LEGS SYNDROME [None]
  - SCIATICA [None]
  - SEBORRHOEIC KERATOSIS [None]
  - SINUSITIS [None]
  - SPONDYLOLISTHESIS [None]
  - SYNOVIAL CYST [None]
  - TOOTH FRACTURE [None]
  - TREMOR [None]
  - URINARY TRACT DISORDER [None]
  - WEIGHT DECREASED [None]
  - WOUND [None]
